FAERS Safety Report 6264928-2 (Version None)
Quarter: 2009Q3

REPORT INFORMATION
  Report Type: 
  Country: None (occurrence: None)
  Receive Date: 20090713
  Receipt Date: 20070820
  Transmission Date: 20100115
  Serious: Yes (Other)
  Sender: FDA-Public Use
  Company Number: US-ASTRAZENECA-2007UW12266

PATIENT
  Age: 17935 Day
  Sex: Female
  Weight: 90.7 kg

DRUGS (27)
  1. SEROQUEL [Suspect]
     Indication: BIPOLAR DISORDER
     Dosage: 600 MG DAILY, 25 - 800 MG
     Route: 048
     Dates: start: 19990816
  2. SEROQUEL [Suspect]
     Route: 048
     Dates: start: 20040510, end: 20061209
  3. HYDROCHLOROTHIAZIDE [Concomitant]
     Indication: HYPERTENSION
     Dates: start: 19980111
  4. HYDROXYZINE PAMOATE [Concomitant]
     Dates: start: 19980111
  5. AMBIEN [Concomitant]
     Dates: start: 19990816
  6. FUROSEMIDE [Concomitant]
     Dosage: 20 - 40 MG
     Dates: start: 19990816
  7. SINGULAIR [Concomitant]
     Indication: ASTHMA
     Dates: start: 19990817
  8. LORATADINE [Concomitant]
     Dates: start: 19990823
  9. TEGRETOL [Concomitant]
     Dosage: 200 - 400 MG
     Dates: start: 19930112
  10. NEURONTIN [Concomitant]
     Indication: NEUROPATHY PERIPHERAL
     Dosage: 300 - 2400 MG
  11. CIMETIDINE HCL [Concomitant]
     Dates: start: 20000925
  12. HALDOL [Concomitant]
     Dates: start: 20030219
  13. OLANZAPINE [Concomitant]
     Dosage: 5 - 10 MG
     Dates: start: 20030103
  14. SIMVASTATIN [Concomitant]
  15. CLONIDINE [Concomitant]
     Indication: HYPERTENSION
     Dosage: 0.1 - 0.2 MG
     Dates: start: 20040327
  16. TRILEPTAL [Concomitant]
  17. VISTARIL [Concomitant]
     Indication: AGITATION
  18. REMERON [Concomitant]
     Dosage: 15 - 45 MG
     Dates: start: 20040327
  19. PRILOSEC [Concomitant]
     Dates: start: 20070320
  20. PROTONIX [Concomitant]
     Indication: GASTROOESOPHAGEAL REFLUX DISEASE
     Dates: start: 20051228
  21. PROTONIX [Concomitant]
     Indication: BARRETT'S OESOPHAGUS
     Dates: start: 20051228
  22. ALBUTEROL [Concomitant]
     Indication: ASTHMA
     Dosage: 90 MCG, 2 PUFFS AS REQUIRED
     Route: 055
  23. METHYLPHENIDATE HCL [Concomitant]
  24. ADVAIR DISKUS 100/50 [Concomitant]
     Indication: ASTHMA
     Dosage: 250 - 50 MCG
     Dates: start: 20050603
  25. POTASSIUM CHLORIDE [Concomitant]
     Dosage: 10 - 20 MEQ
     Dates: start: 20010807
  26. ZOCOR [Concomitant]
     Indication: HYPERLIPIDAEMIA
     Dates: start: 20050930
  27. METOPROLOL TARTRATE [Concomitant]
     Indication: HYPERTENSION
     Dates: start: 20050725

REACTIONS (4)
  - DIABETIC GASTROPARESIS [None]
  - HYPERGLYCAEMIA [None]
  - NEUROPATHY PERIPHERAL [None]
  - TYPE 2 DIABETES MELLITUS [None]
